FAERS Safety Report 8615477-5 (Version None)
Quarter: 2012Q3

REPORT INFORMATION
  Report Type: 
  Country: None (occurrence: None)
  Receive Date: 20120823
  Receipt Date: 20120814
  Transmission Date: 20120928
  Serious: Yes (Other)
  Sender: FDA-Public Use
  Company Number: DE-JNJFOC-20120806683

PATIENT
  Sex: Male

DRUGS (2)
  1. PALIPERIDONE [Suspect]
     Route: 030
  2. PALIPERIDONE [Suspect]
     Indication: PSYCHOTIC DISORDER
     Route: 030

REACTIONS (3)
  - ALANINE AMINOTRANSFERASE INCREASED [None]
  - ASPARTATE AMINOTRANSFERASE INCREASED [None]
  - BLOOD LACTATE DEHYDROGENASE INCREASED [None]
